FAERS Safety Report 24333114 (Version 1)
Quarter: 2024Q3

REPORT INFORMATION
  Report Type: Spontaneous
  Country: FR (occurrence: FR)
  Receive Date: 20240918
  Receipt Date: 20240918
  Transmission Date: 20241017
  Serious: Yes (Death, Other)
  Sender: PFIZER
  Company Number: None

PATIENT
  Age: 81 Year
  Sex: Female

DRUGS (3)
  1. METHYLPREDNISOLONE SODIUM SUCCINATE [Interacting]
     Active Substance: METHYLPREDNISOLONE SODIUM SUCCINATE
     Indication: Lymphoma
     Dosage: 120 MG, WEEKLY
     Route: 042
     Dates: start: 20230331, end: 20230602
  2. TAFASITAMAB [Interacting]
     Active Substance: TAFASITAMAB
     Indication: Lymphoma
     Dosage: 990 MG, WEEKLY
     Route: 042
     Dates: start: 20230331, end: 20230602
  3. LENALIDOMIDE [Interacting]
     Active Substance: LENALIDOMIDE
     Indication: Lymphoma
     Dosage: 1 PER DAY FOR 21 DAYS AND ONE WEEK BREAK
     Route: 048
     Dates: start: 20230331, end: 20230615

REACTIONS (3)
  - Drug interaction [Fatal]
  - Sepsis [Fatal]
  - Off label use [Unknown]

NARRATIVE: CASE EVENT DATE: 20230331
